FAERS Safety Report 9467780 (Version 1)
Quarter: 2013Q3

REPORT INFORMATION
  Report Type: Spontaneous
  Country: US (occurrence: None)
  Receive Date: 20130819
  Receipt Date: 20130819
  Transmission Date: 20140515
  Serious: Yes (Life-Threatening, Disabling)
  Sender: FDA-Public Use
  Company Number: None

PATIENT
  Age: 32 Year
  Sex: Male
  Weight: 81.65 kg

DRUGS (1)
  1. CIPROFLOXACIN [Suspect]
     Indication: HELICOBACTER INFECTION
     Dosage: 16
     Route: 048

REACTIONS (11)
  - Mental disorder [None]
  - Hypoaesthesia [None]
  - Cerebral disorder [None]
  - Insomnia [None]
  - Anxiety [None]
  - Hypoglycaemia [None]
  - Hypertension [None]
  - Headache [None]
  - Tinnitus [None]
  - Fatigue [None]
  - Weight decreased [None]
